FAERS Safety Report 11264649 (Version 3)
Quarter: 2015Q3

REPORT INFORMATION
  Report Type: Spontaneous
  Country: US (occurrence: US)
  Receive Date: 20150713
  Receipt Date: 20150729
  Transmission Date: 20151125
  Serious: No
  Sender: FDA-Public Use
  Company Number: US-PFIZER INC-2015221604

PATIENT
  Age: 73 Year
  Sex: Female
  Weight: 64 kg

DRUGS (6)
  1. BENADRYL [Concomitant]
     Active Substance: DIPHENHYDRAMINE HYDROCHLORIDE
     Indication: SINUS DISORDER
  2. SINGULAIR [Concomitant]
     Active Substance: MONTELUKAST SODIUM
     Indication: HYPERSENSITIVITY
     Dosage: 10 MG, UNK
  3. PROCARDIA XL [Suspect]
     Active Substance: NIFEDIPINE
     Indication: BLOOD PRESSURE ABNORMAL
     Dosage: 60 MG, 1X/DAY
     Route: 048
  4. FLONASE [Concomitant]
     Active Substance: FLUTICASONE PROPIONATE
     Indication: SEASONAL ALLERGY
     Dosage: 50 ?G, UNK
  5. BENADRYL [Concomitant]
     Active Substance: DIPHENHYDRAMINE HYDROCHLORIDE
     Indication: HYPERSENSITIVITY
     Dosage: UNK
  6. SINGULAIR [Concomitant]
     Active Substance: MONTELUKAST SODIUM
     Indication: SINUS DISORDER

REACTIONS (7)
  - Malaise [Unknown]
  - Headache [Unknown]
  - Hypersensitivity [Not Recovered/Not Resolved]
  - Gait disturbance [Not Recovered/Not Resolved]
  - Vertigo positional [Not Recovered/Not Resolved]
  - Hyperkeratosis [Unknown]
  - Rotator cuff syndrome [Not Recovered/Not Resolved]
